FAERS Safety Report 7475141-5 (Version None)
Quarter: 2011Q2

REPORT INFORMATION
  Report Type: 
  Country: None (occurrence: None)
  Receive Date: 20110512
  Receipt Date: 20110427
  Transmission Date: 20111010
  Serious: Yes (Other)
  Sender: FDA-Public Use
  Company Number: US-ELI_LILLY_AND_COMPANY-US201003002874

PATIENT
  Sex: Female

DRUGS (17)
  1. ALLOPURINOL [Concomitant]
     Indication: GOUT
     Dosage: UNK
  2. FORTEO [Suspect]
     Dosage: 20 UG, DAILY (1/D)
  3. TYLENOL (CAPLET) [Concomitant]
     Dosage: UNK, UNKNOWN
  4. LISINOPRIL [Concomitant]
  5. VITAMINS-MINERALS THERAPEUTIC [Concomitant]
  6. FORTEO [Suspect]
     Indication: OSTEOPOROSIS
     Dosage: 20 UG, DAILY (1/D)
     Dates: start: 20100101
  7. FORTEO [Suspect]
     Dosage: 20 UG, DAILY (1/D)
  8. FOSINOPRIL SODIUM [Concomitant]
     Dosage: 10 MG, QD
  9. ANTIHYPERTENSIVES [Concomitant]
  10. FORTEO [Suspect]
     Dosage: 20 UG, DAILY (1/D)
  11. CALCIUM W/VITAMIN D NOS [Concomitant]
  12. TIMOLOL MALEATE [Concomitant]
     Dosage: UNK
     Route: 047
  13. LESCOL [Concomitant]
     Dosage: 40 MG, QD
  14. NIFEDICAL [Concomitant]
     Dosage: 30 MG, QD
  15. TYLENOL PM [Suspect]
  16. XALATAN [Concomitant]
     Dosage: .005 %, EACH EVENING
     Route: 047
  17. FISH OIL [Concomitant]
     Dosage: UNK

REACTIONS (19)
  - LYMPHOMA [None]
  - SKIN CANCER [None]
  - NEOPLASM MALIGNANT [None]
  - PAIN IN EXTREMITY [None]
  - HYPOACUSIS [None]
  - PAIN [None]
  - VISUAL ACUITY REDUCED [None]
  - OEDEMA PERIPHERAL [None]
  - FATIGUE [None]
  - HYPERSOMNIA [None]
  - WEIGHT DECREASED [None]
  - NIGHT SWEATS [None]
  - CONTUSION [None]
  - FALL [None]
  - NEOPLASM [None]
  - COUGH [None]
  - BACK PAIN [None]
  - MUSCLE SPASMS [None]
  - URINARY TRACT INFECTION [None]
